FAERS Safety Report 14012076 (Version 4)
Quarter: 2022Q3

REPORT INFORMATION
  Report Type: Report from Study
  Country: HU (occurrence: HU)
  Receive Date: 20170926
  Receipt Date: 20220912
  Transmission Date: 20221027
  Serious: Yes (Other)
  Sender: FDA-Public Use
  Company Number: PHHY2016HU036020

PATIENT
  Age: 16 Year
  Sex: Male

DRUGS (3)
  1. GLIVEC [Suspect]
     Active Substance: IMATINIB MESYLATE
     Indication: Acute lymphocytic leukaemia
     Dosage: 300 MG, QD
     Route: 048
     Dates: start: 20141031
  2. GLIVEC [Suspect]
     Active Substance: IMATINIB MESYLATE
     Indication: Philadelphia chromosome positive
     Dosage: 300 MG, QD
     Route: 048
     Dates: start: 20141105, end: 20150209
  3. GLIVEC [Suspect]
     Active Substance: IMATINIB MESYLATE
     Dosage: UNK
     Route: 048
     Dates: start: 20150218

REACTIONS (20)
  - Iridocyclitis [Unknown]
  - White blood cell count decreased [Unknown]
  - Pneumonia [Unknown]
  - Hypokalaemia [Recovered/Resolved]
  - Leukopenia [Recovered/Resolved]
  - Thrombocytopenia [Recovered/Resolved]
  - Febrile neutropenia [Recovered/Resolved]
  - Bronchitis [Unknown]
  - Pharyngitis [Unknown]
  - Haematuria [Unknown]
  - Anaemia [Unknown]
  - Gastroenteritis [Unknown]
  - Mucosal inflammation [Unknown]
  - Pyrexia [Unknown]
  - Activated partial thromboplastin time prolonged [Unknown]
  - Hypersensitivity [Unknown]
  - Cough [Unknown]
  - Herpes virus infection [Unknown]
  - Inflammation [Unknown]
  - Drug hypersensitivity [Unknown]

NARRATIVE: CASE EVENT DATE: 20141031
